FAERS Safety Report 5121300-6 (Version None)
Quarter: 2006Q4

REPORT INFORMATION
  Report Type: 
  Country: None (occurrence: None)
  Receive Date: 20061002
  Receipt Date: 20060918
  Transmission Date: 20070319
  Serious: Yes (Other)
  Sender: FDA-Public Use
  Company Number: CAWYE859605SEP06

PATIENT
  Age: 61 Year
  Sex: Female

DRUGS (4)
  1. EFFEXOR XR [Suspect]
     Indication: DEPRESSION
     Dosage: 37.5 MG 1X PER 1 DAY ORAL
     Route: 048
     Dates: start: 20060823, end: 20060823
  2. PREMARIN [Concomitant]
  3. PREMARIN [Concomitant]
  4. CLONAZEPAM [Concomitant]

REACTIONS (6)
  - BLOOD PRESSURE SYSTOLIC INCREASED [None]
  - BURNING SENSATION [None]
  - MALAISE [None]
  - NAUSEA [None]
  - PALPITATIONS [None]
  - VISION BLURRED [None]
